FAERS Safety Report 8393905-0 (Version None)
Quarter: 2012Q2

REPORT INFORMATION
  Report Type: 
  Country: None (occurrence: None)
  Receive Date: 20120524
  Receipt Date: 20120510
  Transmission Date: 20120825
  Serious: Yes (Death, Hospitalization)
  Sender: FDA-Public Use
  Company Number: 2012US0167

PATIENT
  Age: 59 Year
  Sex: Male

DRUGS (6)
  1. PREDNISONE TAPER (PREDNISONE) [Concomitant]
  2. ANTI-THYMOCYTE GLOBULIN NOS [Concomitant]
  3. KINERET [Suspect]
     Indication: GOUT
     Dosage: 100 MG, 1 IN 1 D, SUBCUTANEOUS
     Route: 058
  4. MYCOPHENOLATE MOFETIL [Concomitant]
  5. TACROLIMUS [Concomitant]
  6. BACTRIM [Concomitant]

REACTIONS (9)
  - TRANSFUSION ASSOCIATED GRAFT VERSUS HOST DISEASE [None]
  - PANCYTOPENIA [None]
  - CLOSTRIDIUM DIFFICILE COLITIS [None]
  - BONE MARROW FAILURE [None]
  - TRANSPLANT FAILURE [None]
  - SEPTIC SHOCK [None]
  - GRAFT VERSUS HOST DISEASE IN SKIN [None]
  - SYSTEMIC CANDIDA [None]
  - ENTEROCOCCAL SEPSIS [None]
